FAERS Safety Report 5934966-5 (Version None)
Quarter: 2008Q4

REPORT INFORMATION
  Report Type: 
  Country: None (occurrence: None)
  Receive Date: 20081028
  Receipt Date: 20081021
  Transmission Date: 20090506
  Serious: Yes (Other)
  Sender: FDA-Public Use
  Company Number: CHPA2008US18143

PATIENT
  Age: 87 Year
  Sex: Female

DRUGS (5)
  1. MAALOX ANTIACID/ANTIGAS MAX STR MULTI SYMPTOM (NCH)(MAGNESIUM HYDROXID [Suspect]
     Indication: ABDOMINAL PAIN UPPER
     Dosage: PRN, ORAL, 4 TSP QD, ORAL
     Route: 048
     Dates: start: 20081021
  2. ATENOLOL [Concomitant]
  3. LEVOXYL [Concomitant]
  4. ASPIRIN [Concomitant]
  5. SYNTHROID [Concomitant]

REACTIONS (3)
  - ARRHYTHMIA [None]
  - CONCOMITANT DISEASE PROGRESSION [None]
  - DRUG INEFFECTIVE [None]
